FAERS Safety Report 6824001-9 (Version None)
Quarter: 2010Q3

REPORT INFORMATION
  Report Type: 
  Country: None (occurrence: None)
  Receive Date: 20100708
  Receipt Date: 20060927
  Transmission Date: 20110219
  Serious: Yes (Other)
  Sender: FDA-Public Use
  Company Number: US-PFIZER INC-2006120097

PATIENT
  Sex: Female

DRUGS (2)
  1. CHANTIX [Suspect]
  2. DEPO-PROVERA SUSPENSION/INJ [Suspect]

REACTIONS (1)
  - METRORRHAGIA [None]
